FAERS Safety Report 15126936 (Version 1)
Quarter: 2018Q3

REPORT INFORMATION
  Report Type: Spontaneous
  Country: IE (occurrence: IE)
  Receive Date: 20180710
  Receipt Date: 20180710
  Transmission Date: 20181010
  Serious: Yes (Death, Hospitalization, Other)
  Sender: FDA-Public Use
  Company Number: IE-ALLERGAN-1834421US

PATIENT
  Age: 79 Year
  Sex: Male

DRUGS (2)
  1. TRIPTORELIN PAMOATE UNK [Suspect]
     Active Substance: TRIPTORELIN PAMOATE
     Indication: PROSTATE CANCER
     Dosage: UNK
     Route: 065
  2. BICALUTAMIDE. [Suspect]
     Active Substance: BICALUTAMIDE
     Indication: PROSTATE CANCER
     Dosage: UNK
     Route: 065

REACTIONS (7)
  - Metastasis [Unknown]
  - Anal incontinence [Unknown]
  - Death [Fatal]
  - Spinal cord compression [Unknown]
  - Urosepsis [Unknown]
  - Urine output increased [Unknown]
  - Anaesthesia [Unknown]
